FAERS Safety Report 23338871 (Version 1)
Quarter: 2023Q4

REPORT INFORMATION
  Report Type: Other
  Country: JP (occurrence: None)
  Receive Date: 20231226
  Receipt Date: 20231226
  Transmission Date: 20240110
  Serious: Yes (Other)
  Sender: FDA-Public Use
  Company Number: JP-ROCHE-3480065

PATIENT
  Age: 48 Year
  Sex: Female

DRUGS (11)
  1. ENTRECTINIB [Suspect]
     Active Substance: ENTRECTINIB
     Indication: Sarcoma
     Route: 065
  2. ENTRECTINIB [Suspect]
     Active Substance: ENTRECTINIB
     Dosage: FOR A WEEK
     Route: 065
  3. LAROTRECTINIB [Concomitant]
     Active Substance: LAROTRECTINIB
     Route: 048
  4. VINCRISTINE [Concomitant]
     Active Substance: VINCRISTINE
  5. DOXORUBICIN [Concomitant]
     Active Substance: DOXORUBICIN
  6. CYCLOPHOSPHAMIDE [Concomitant]
     Active Substance: CYCLOPHOSPHAMIDE
  7. IFOSFAMIDE [Concomitant]
     Active Substance: IFOSFAMIDE
  8. ETOPOSIDE [Concomitant]
     Active Substance: ETOPOSIDE
  9. PREDNISOLONE [Concomitant]
     Active Substance: PREDNISOLONE
     Route: 048
  10. IRINOTECAN [Concomitant]
     Active Substance: IRINOTECAN
  11. TEMOZOLOMIDE [Concomitant]
     Active Substance: TEMOZOLOMIDE

REACTIONS (11)
  - Neutropenia [Recovered/Resolved]
  - Leukopenia [Unknown]
  - Alanine aminotransferase increased [Unknown]
  - Blood creatinine increased [Unknown]
  - Aspartate aminotransferase increased [Unknown]
  - Dysgeusia [Unknown]
  - Anaemia [Unknown]
  - Blood alkaline phosphatase increased [Unknown]
  - Vertigo [Unknown]
  - Dizziness [Unknown]
  - Disease progression [Unknown]
